FAERS Safety Report 10155445 (Version 1)
Quarter: 2014Q2

REPORT INFORMATION
  Report Type: Spontaneous
  Country: ES (occurrence: ES)
  Receive Date: 20140506
  Receipt Date: 20140506
  Transmission Date: 20141212
  Serious: Yes (Death, Hospitalization)
  Sender: FDA-Public Use
  Company Number: PHHY2014ES052437

PATIENT
  Age: 85 Year
  Sex: Female

DRUGS (6)
  1. SINTROM [Suspect]
     Indication: ATRIAL FIBRILLATION
     Dosage: 4 MG, QD
     Route: 048
     Dates: start: 200909
  2. CITALOPRAM [Suspect]
     Dosage: 20 MG, QD
     Route: 048
  3. CLOPIDOGREL [Suspect]
     Indication: ISCHAEMIC CARDIOMYOPATHY
     Dosage: 75 MG, QD
     Route: 048
     Dates: start: 200911
  4. SIMVASTATINA [Suspect]
     Indication: HYPERLIPIDAEMIA
     Dosage: 40 MG, QD
     Route: 048
  5. CILOSTAZOL [Suspect]
     Indication: PERIPHERAL VENOUS DISEASE
     Dosage: 200 MG, QD
     Route: 048
  6. AMIODARONA//AMIODARONE [Suspect]
     Indication: ATRIAL FIBRILLATION
     Dosage: 200 MG, QD
     Route: 048

REACTIONS (3)
  - Subdural haemorrhage [Fatal]
  - Fall [None]
  - Haematocrit decreased [None]
